FAERS Safety Report 10146117 (Version 1)
Quarter: 2014Q2

REPORT INFORMATION
  Report Type: Spontaneous
  Country: US (occurrence: None)
  Receive Date: 20140430
  Receipt Date: 20140430
  Transmission Date: 20141212
  Serious: Yes (Life-Threatening, Hospitalization)
  Sender: FDA-Public Use
  Company Number: None

PATIENT
  Age: 70 Year
  Sex: Female
  Weight: 71.4 kg

DRUGS (2)
  1. XARELTO [Suspect]
     Indication: ATRIAL FIBRILLATION
     Dosage: 15 MG, ONCE DAILY, ORAL?
     Route: 048
     Dates: end: 20140426
  2. AMIODARONE [Suspect]
     Indication: ATRIAL FIBRILLATION
     Route: 042
     Dates: start: 20140427, end: 20140427

REACTIONS (7)
  - Renal failure acute [None]
  - Dyspnoea exertional [None]
  - Nausea [None]
  - Vomiting [None]
  - Dehydration [None]
  - Wheezing [None]
  - Pulmonary haemorrhage [None]
